FAERS Safety Report 8364261 (Version 2)
Quarter: 2013Q1

REPORT INFORMATION
  Report Type: Report from Study
  Country: US (occurrence: US)
  Receive Date: 20120127
  Receipt Date: 20130129
  Transmission Date: 20140127
  Serious: Yes (Hospitalization)
  Sender: FDA-Public Use
  Company Number: US-ABBOTT-11P-163-0700732-00

PATIENT
  Age: 47 None
  Sex: Female
  Weight: 53.57 kg

DRUGS (13)
  1. HUMIRA 40 MG/0.8 ML PEN [Suspect]
     Indication: CROHN^S DISEASE
     Dates: start: 2005
  2. FLAGYL [Concomitant]
     Indication: FREQUENT BOWEL MOVEMENTS
  3. WELCHOL [Concomitant]
     Indication: FREQUENT BOWEL MOVEMENTS
  4. KLONOPIN [Concomitant]
     Indication: ANXIETY
  5. ZOFRAN [Concomitant]
     Indication: NAUSEA
  6. TRAZODONE [Concomitant]
     Indication: INSOMNIA
  7. TRAZODONE [Concomitant]
     Indication: SLEEP DISORDER THERAPY
  8. DILAUDID [Concomitant]
     Indication: PAIN
  9. CHANTIX [Concomitant]
     Indication: EX-TOBACCO USER
  10. PNEUMONIA VACCINE [Concomitant]
     Indication: PRODUCT USED FOR UNKNOWN INDICATION
  11. FLU VACCINE [Concomitant]
     Indication: PRODUCT USED FOR UNKNOWN INDICATION
  12. VITAMIN B12 [Concomitant]
     Indication: VITAMIN SUPPLEMENTATION
  13. PREMPRO [Concomitant]
     Indication: HORMONE REPLACEMENT THERAPY

REACTIONS (14)
  - Crohn^s disease [Recovering/Resolving]
  - Pain [Not Recovered/Not Resolved]
  - Crohn^s disease [Recovered/Resolved]
  - Dehydration [Recovered/Resolved]
  - Hypersomnia [Not Recovered/Not Resolved]
  - Injection site pain [Not Recovered/Not Resolved]
  - Injection site haemorrhage [Not Recovered/Not Resolved]
  - Injection site haemorrhage [Not Recovered/Not Resolved]
  - Fatigue [Not Recovered/Not Resolved]
  - Arthralgia [Not Recovered/Not Resolved]
  - Diarrhoea [Not Recovered/Not Resolved]
  - Vomiting [Not Recovered/Not Resolved]
  - Drug ineffective [Not Recovered/Not Resolved]
  - Injection site pain [Not Recovered/Not Resolved]
